FAERS Safety Report 15945697 (Version 1)
Quarter: 2019Q1

REPORT INFORMATION
  Report Type: Spontaneous
  Country: IT (occurrence: IT)
  Receive Date: 20190211
  Receipt Date: 20190211
  Transmission Date: 20190417
  Serious: Yes (Hospitalization)
  Sender: FDA-Public Use
  Company Number: IT-ACCORD-106437

PATIENT
  Age: 73 Year
  Sex: Male

DRUGS (4)
  1. AMITRIPTYLINE [Suspect]
     Active Substance: AMITRIPTYLINE
     Indication: PSYCHOMOTOR HYPERACTIVITY
     Route: 048
  2. DELORAZEPAM [Interacting]
     Active Substance: DELORAZEPAM
     Indication: PSYCHOMOTOR HYPERACTIVITY
  3. FUROSEMIDE. [Concomitant]
     Active Substance: FUROSEMIDE
     Indication: HYPERTENSION
     Route: 048
  4. ROSUVASTATIN. [Concomitant]
     Active Substance: ROSUVASTATIN
     Indication: HYPERCHOLESTEROLAEMIA
     Route: 048

REACTIONS (3)
  - Drug interaction [Unknown]
  - Sopor [Recovered/Resolved]
  - Irregular sleep wake rhythm disorder [Recovered/Resolved]

NARRATIVE: CASE EVENT DATE: 20180521
